FAERS Safety Report 9657648 (Version 2)
Quarter: 2014Q1

REPORT INFORMATION
  Report Type: Spontaneous
  Country: FR (occurrence: FR)
  Receive Date: 20131030
  Receipt Date: 20140203
  Transmission Date: 20141002
  Serious: Yes (Hospitalization)
  Sender: FDA-Public Use
  Company Number: FR-SA-2013SA106956

PATIENT
  Age: 36 Year
  Sex: Female

DRUGS (6)
  1. STILNOX [Suspect]
     Indication: SLEEP DISORDER
     Route: 048
     Dates: end: 20131005
  2. STILNOX [Suspect]
     Indication: SLEEP DISORDER
     Route: 048
     Dates: start: 20131006
  3. SEROPLEX [Suspect]
     Indication: DEPRESSION
     Dosage: STRENGTH: 10 MG
     Route: 048
     Dates: start: 2012, end: 20131005
  4. SEROPLEX [Suspect]
     Indication: DEPRESSION
     Route: 048
     Dates: start: 20131007
  5. METHADONE [Suspect]
     Indication: DRUG DEPENDENCE
     Route: 048
     Dates: start: 2008, end: 20131005
  6. METHADONE [Suspect]
     Indication: DRUG DEPENDENCE
     Route: 048
     Dates: start: 20131007

REACTIONS (4)
  - Pancreatitis acute [Recovering/Resolving]
  - Abdominal pain [Recovering/Resolving]
  - Vomiting [Recovering/Resolving]
  - Hepatic enzyme increased [Recovering/Resolving]
